FAERS Safety Report 8274296-2 (Version None)
Quarter: 2012Q2

REPORT INFORMATION
  Report Type: 
  Country: None (occurrence: None)
  Receive Date: 20120411
  Receipt Date: 20120411
  Transmission Date: 20120825
  Serious: Yes (Other)
  Sender: FDA-Public Use
  Company Number: None

PATIENT
  Age: 67 Year
  Sex: Male
  Weight: 82.553 kg

DRUGS (1)
  1. GABAPENTIN [Suspect]
     Indication: TRIGEMINAL NEURALGIA
     Dosage: TITRATED FROM 1 CAPSULE TO 3 C
     Route: 048
     Dates: start: 20120217, end: 20120303

REACTIONS (1)
  - PROSTATIC DISORDER [None]
